FAERS Safety Report 6776407-4 (Version None)
Quarter: 2010Q2

REPORT INFORMATION
  Report Type: 
  Country: None (occurrence: None)
  Receive Date: 20100615
  Receipt Date: 20100608
  Transmission Date: 20101027
  Serious: Yes (Hospitalization)
  Sender: FDA-Public Use
  Company Number: 588481

PATIENT
  Age: 74 Year
  Sex: Female
  Weight: 77.1 kg

DRUGS (12)
  1. MORPHINE SULFATE [Suspect]
     Indication: INCISION SITE PAIN
     Dosage: 2 MG BID, INTRAVENOUS (NOT OTHERWISE SPECIFIED)
     Route: 042
     Dates: start: 20100406, end: 20100407
  2. CARBIDOPA AND LEVODOPA [Suspect]
     Indication: PARKINSON'S DISEASE
     Dosage: 4.1 ML MILLILITRE(S), 1 HOUR, GASTROENTERAL USE
     Dates: start: 20100330
  3. CARBIDOPA-LEVODOPA [Concomitant]
  4. CYANOCOBALAMIN [Concomitant]
  5. (ESOMEPRAZOLE MAGNEISUM) [Concomitant]
  6. METRONIDAZOLE [Concomitant]
  7. CYCLOBENZAPRINE HYDROCHLORIDE [Concomitant]
  8. GENTAMICIN SULFATE [Concomitant]
  9. (GOLECALCIFEROL) [Concomitant]
  10. (MULTIVITAMINS, OTHER COMBINATIONS) [Concomitant]
  11. (OMEGA-3 TRIGLYCERIDES) [Concomitant]
  12. ACETAMINOPHEN [Concomitant]

REACTIONS (6)
  - ABDOMINAL PAIN [None]
  - CONDITION AGGRAVATED [None]
  - LYMPHOCYTE COUNT DECREASED [None]
  - NEUTROPHIL COUNT INCREASED [None]
  - POSTOPERATIVE ILEUS [None]
  - VOMITING [None]
